FAERS Safety Report 6877258-2 (Version None)
Quarter: 2010Q3

REPORT INFORMATION
  Report Type: 
  Country: None (occurrence: None)
  Receive Date: 20100727
  Receipt Date: 20090813
  Transmission Date: 20110219
  Serious: No
  Sender: FDA-Public Use
  Company Number: US-ABBOTT-09P-163-0592080-00

PATIENT
  Sex: Male
  Weight: 131.66 kg

DRUGS (5)
  1. SYNTHROID [Suspect]
     Indication: THYROIDECTOMY
     Dates: start: 20080101, end: 20081001
  2. SYNTHROID [Suspect]
     Indication: HYPOTHYROIDISM
  3. CYTOMEL [Concomitant]
     Indication: PRODUCT USED FOR UNKNOWN INDICATION
  4. METFORMIN HCL [Concomitant]
     Indication: PRODUCT USED FOR UNKNOWN INDICATION
  5. URSODIL [Concomitant]
     Indication: LIVER DISORDER

REACTIONS (3)
  - BLOOD GLUCOSE INCREASED [None]
  - HEPATIC ENZYME INCREASED [None]
  - POOR QUALITY DRUG ADMINISTERED [None]
